FAERS Safety Report 6012779-6 (Version None)
Quarter: 2008Q4

REPORT INFORMATION
  Report Type: 
  Country: None (occurrence: None)
  Receive Date: 20081219
  Receipt Date: 20081216
  Transmission Date: 20090506
  Serious: Yes (Death)
  Sender: FDA-Public Use
  Company Number: US-RB-007577-08

PATIENT
  Age: 32 Year
  Sex: Male

DRUGS (1)
  1. DELSYM UNSPECIFIED [Suspect]

REACTIONS (3)
  - BREATHING-RELATED SLEEP DISORDER [None]
  - DEATH [None]
  - INSOMNIA [None]
